FAERS Safety Report 20916684 (Version 5)
Quarter: 2022Q2

REPORT INFORMATION
  Report Type: Spontaneous
  Country: MX (occurrence: MX)
  Receive Date: 20220605
  Receipt Date: 20220614
  Transmission Date: 20220721
  Serious: No
  Sender: FDA-Public Use
  Company Number: MX-VER-202200001

PATIENT
  Age: 9 Year
  Sex: Female

DRUGS (1)
  1. TRIPTORELIN PAMOATE [Suspect]
     Active Substance: TRIPTORELIN PAMOATE
     Indication: Precocious puberty
     Dosage: 1 LIO X 1 FCO LIOFILIZADO
     Route: 065
     Dates: start: 20220310

REACTIONS (3)
  - Administration site pain [Unknown]
  - Erythema [Unknown]
  - Administration site wound [Unknown]
